FAERS Safety Report 25715177 (Version 1)
Quarter: 2025Q3

REPORT INFORMATION
  Report Type: Other
  Country: US (occurrence: US)
  Receive Date: 20250822
  Receipt Date: 20250822
  Transmission Date: 20251021
  Serious: Yes (Other)
  Sender: NAVINTA LLC
  Company Number: US-Navinta LLC-000543

PATIENT
  Age: 62 Year
  Sex: Male

DRUGS (1)
  1. HYDRALAZINE [Suspect]
     Active Substance: HYDRALAZINE HYDROCHLORIDE
     Indication: Hypertension

REACTIONS (3)
  - Antineutrophil cytoplasmic antibody positive [Unknown]
  - Glomerulonephritis [Unknown]
  - Acute kidney injury [Unknown]
